FAERS Safety Report 7281123-9 (Version None)
Quarter: 2011Q1

REPORT INFORMATION
  Report Type: 
  Country: None (occurrence: None)
  Receive Date: 20110208
  Receipt Date: 20110131
  Transmission Date: 20110831
  Serious: Yes (Death, Hospitalization)
  Sender: FDA-Public Use
  Company Number: CHPA2011US01927

PATIENT
  Age: 35 Year
  Sex: Male

DRUGS (6)
  1. CITALOPRAM [Suspect]
  2. ACETAMINOPHEN [Suspect]
  3. AMLODIPINE [Suspect]
  4. COLCHICINE [Suspect]
  5. ALLOPURINOL [Suspect]
  6. LISINOPRIL [Suspect]

REACTIONS (17)
  - COMPLETED SUICIDE [None]
  - HYPOXIA [None]
  - ATRIOVENTRICULAR BLOCK [None]
  - BLOOD PRESSURE DECREASED [None]
  - ASPARTATE AMINOTRANSFERASE INCREASED [None]
  - HYPERGLYCAEMIA [None]
  - RHABDOMYOLYSIS [None]
  - RENAL FAILURE [None]
  - UNRESPONSIVE TO STIMULI [None]
  - APNOEA [None]
  - ALANINE AMINOTRANSFERASE INCREASED [None]
  - SHOCK [None]
  - HYPERKALAEMIA [None]
  - MULTIPLE DRUG OVERDOSE [None]
  - BACK PAIN [None]
  - BLOOD CREATININE INCREASED [None]
  - BRADYCARDIA [None]
